FAERS Safety Report 5497753-0 (Version None)
Quarter: 2007Q4

REPORT INFORMATION
  Report Type: 
  Country: None (occurrence: None)
  Receive Date: 20071025
  Receipt Date: 20070220
  Transmission Date: 20080405
  Serious: No
  Sender: FDA-Public Use
  Company Number: A0640245A

PATIENT
  Age: 58 Year
  Sex: Female

DRUGS (4)
  1. ADVAIR DISKUS 100/50 [Suspect]
     Indication: ASTHMA
     Dosage: 1PUFF TWICE PER DAY
  2. SINGULAIR [Concomitant]
  3. NEXIUM [Concomitant]
  4. ZETIA [Concomitant]

REACTIONS (1)
  - CANDIDIASIS [None]
